FAERS Safety Report 13834321 (Version 2)
Quarter: 2017Q3

REPORT INFORMATION
  Report Type: Spontaneous
  Country: AU (occurrence: AU)
  Receive Date: 20170804
  Receipt Date: 20170921
  Transmission Date: 20171127
  Serious: Yes (Hospitalization, Disabling)
  Sender: FDA-Public Use
  Company Number: AU-ROCHE-1971951

PATIENT
  Age: 17 Month
  Sex: Male
  Weight: 12.39 kg

DRUGS (19)
  1. BIOTIN [Concomitant]
     Active Substance: BIOTIN
  2. PYRIDOXINE HYDROCHLORIDE. [Concomitant]
     Active Substance: PYRIDOXINE HYDROCHLORIDE
     Route: 065
     Dates: start: 20160412
  3. ERGOCALCIFEROL. [Concomitant]
     Active Substance: ERGOCALCIFEROL
     Route: 065
     Dates: start: 20160129
  4. SODIUM CHLORIDE. [Concomitant]
     Active Substance: SODIUM CHLORIDE
     Route: 065
     Dates: start: 20151223
  5. ASCORBIC ACID. [Concomitant]
     Active Substance: ASCORBIC ACID
     Route: 065
     Dates: start: 20160129
  6. THIAMINE HYDROCHLORIDE. [Concomitant]
     Active Substance: THIAMINE HYDROCHLORIDE
     Route: 065
     Dates: start: 20160129
  7. COLECALCIFEROL [Concomitant]
     Active Substance: CHOLECALCIFEROL
     Route: 065
     Dates: start: 20160412
  8. NICOTINAMIDE [Concomitant]
     Active Substance: NIACINAMIDE
     Route: 065
     Dates: start: 20160129
  9. RETINOL PALMITATE [Concomitant]
     Route: 065
     Dates: start: 20160412
  10. CALCIUM PANTOTHENATE [Concomitant]
     Active Substance: CALCIUM PANTOTHENATE
  11. PHYTOMENADIONE [Concomitant]
     Active Substance: PHYTONADIONE
     Route: 065
     Dates: start: 20160412
  12. PANCRELIPASE. [Concomitant]
     Active Substance: PANCRELIPASE
     Route: 065
     Dates: start: 20160309
  13. FOLIC ACID. [Concomitant]
     Active Substance: FOLIC ACID
     Route: 065
     Dates: start: 20160129
  14. RIBOFLAVIN [Concomitant]
     Active Substance: RIBOFLAVIN
     Route: 065
     Dates: start: 20160129
  15. TOCOPHERYL ACID SUCCINATE [Concomitant]
     Route: 065
     Dates: start: 20160412
  16. PULMOZYME [Suspect]
     Active Substance: DORNASE ALFA
     Indication: CYSTIC FIBROSIS LUNG
     Route: 055
     Dates: start: 20170310
  17. AZITHROMYCIN ANHYDROUS. [Suspect]
     Active Substance: AZITHROMYCIN ANHYDROUS
     Indication: PRODUCT USED FOR UNKNOWN INDICATION
     Dosage: MOST RECENT DOSE BEFORE THE DOSE WAS 100 MG
     Route: 065
     Dates: start: 20160323
  18. CYANOCOBALAMIN. [Concomitant]
     Active Substance: CYANOCOBALAMIN
     Route: 065
     Dates: start: 20160412
  19. PANTHENOL [Concomitant]
     Active Substance: PANTHENOL
     Route: 065
     Dates: start: 20160129

REACTIONS (3)
  - Infective pulmonary exacerbation of cystic fibrosis [Recovering/Resolving]
  - Viral infection [Recovering/Resolving]
  - Bacterial test positive [Recovered/Resolved]

NARRATIVE: CASE EVENT DATE: 20170225
